FAERS Safety Report 18513309 (Version 4)
Quarter: 2020Q4

REPORT INFORMATION
  Report Type: Other
  Country: DE (occurrence: DE)
  Receive Date: 20201118
  Receipt Date: 20201217
  Transmission Date: 20210114
  Serious: Yes (Death, Other)
  Sender: FDA-Public Use
  Company Number: DE-ROCHE-2714394

PATIENT
  Age: 31 Year
  Sex: Female

DRUGS (18)
  1. CHLOROTHEOPHYLLINE [Suspect]
     Active Substance: CHLORTHEOPHYLLINE
     Indication: COMPLETED SUICIDE
     Route: 065
  2. AMPHETAMINE [Suspect]
     Active Substance: AMPHETAMINE
     Indication: COMPLETED SUICIDE
     Route: 065
  3. OPIPRAMOL [Suspect]
     Active Substance: OPIPRAMOL
     Indication: COMPLETED SUICIDE
     Route: 065
  4. METHADONE [Suspect]
     Active Substance: METHADONE HYDROCHLORIDE
     Indication: PRODUCT USED FOR UNKNOWN INDICATION
     Dosage: UNK
     Route: 065
  5. COCAINE [Suspect]
     Active Substance: COCAINE
     Indication: COMPLETED SUICIDE
     Route: 065
  6. CAFFEINE. [Suspect]
     Active Substance: CAFFEINE
     Indication: COMPLETED SUICIDE
     Route: 065
  7. DIPHENHYDRAMINE. [Suspect]
     Active Substance: DIPHENHYDRAMINE
     Indication: COMPLETED SUICIDE
     Route: 065
  8. NORDAZEPAM [Suspect]
     Active Substance: NORDAZEPAM
     Indication: COMPLETED SUICIDE
     Route: 065
  9. TEMAZEPAM. [Suspect]
     Active Substance: TEMAZEPAM
     Indication: COMPLETED SUICIDE
     Route: 065
  10. TETRAHYDROCANNABINOL [Suspect]
     Active Substance: DRONABINOL
     Indication: SUSPECTED SUICIDE
     Route: 065
  11. ALCOHOL. [Suspect]
     Active Substance: ALCOHOL
     Indication: PRODUCT USED FOR UNKNOWN INDICATION
     Route: 065
  12. TETRAMISOLE [Suspect]
     Active Substance: TETRAMISOLE
     Indication: COMPLETED SUICIDE
     Route: 065
  13. BENZOYLECGONINE [Suspect]
     Active Substance: BENZOYLECGONINE
     Indication: PRODUCT USED FOR UNKNOWN INDICATION
     Route: 065
  14. MORPHINE [Suspect]
     Active Substance: MORPHINE
     Indication: COMPLETED SUICIDE
     Route: 065
  15. ETORICOXIB. [Suspect]
     Active Substance: ETORICOXIB
     Indication: COMPLETED SUICIDE
     Route: 065
  16. DIAZEPAM. [Suspect]
     Active Substance: DIAZEPAM
     Indication: COMPLETED SUICIDE
     Route: 065
  17. TETRAZEPAM [Suspect]
     Active Substance: TETRAZEPAM
     Indication: PRODUCT USED FOR UNKNOWN INDICATION
     Dosage: UNK
     Route: 065
  18. CODEINE [Suspect]
     Active Substance: CODEINE
     Indication: PRODUCT USED FOR UNKNOWN INDICATION
     Dosage: UNK
     Route: 065

REACTIONS (5)
  - Off label use [Fatal]
  - Drug abuse [Unknown]
  - Poisoning [Fatal]
  - Intentional product use issue [Fatal]
  - Suspected suicide [Fatal]

NARRATIVE: CASE EVENT DATE: 2013
